FAERS Safety Report 11637828 (Version 1)
Quarter: 2015Q4

REPORT INFORMATION
  Report Type: Spontaneous
  Country: US (occurrence: US)
  Receive Date: 20151016
  Receipt Date: 20151016
  Transmission Date: 20160304
  Serious: Yes (Other)
  Sender: FDA-Public Use
  Company Number: US-PFIZER INC-2015333664

PATIENT
  Age: 98 Year
  Sex: Female
  Weight: 68 kg

DRUGS (1)
  1. ROBITUSSIN DM [Suspect]
     Active Substance: DEXTROMETHORPHAN HYDROBROMIDE\GUAIFENESIN
     Indication: COUGH
     Dosage: 10 ML, SINGLE
     Route: 048
     Dates: start: 20151004, end: 20151004

REACTIONS (4)
  - Product label issue [Recovered/Resolved]
  - Emotional distress [Recovered/Resolved]
  - Hypertension [Recovered/Resolved]
  - Nervousness [Recovered/Resolved]

NARRATIVE: CASE EVENT DATE: 201510
